FAERS Safety Report 8624366-1 (Version None)
Quarter: 2012Q3

REPORT INFORMATION
  Report Type: 
  Country: None (occurrence: None)
  Receive Date: 20120827
  Receipt Date: 20120816
  Transmission Date: 20120928
  Serious: Yes (Other)
  Sender: FDA-Public Use
  Company Number: FR-ABBOTT-12P-056-0969038-00

PATIENT

DRUGS (1)
  1. ADALIMUMAB [Suspect]
     Indication: ERYTHRODERMIC PSORIASIS

REACTIONS (1)
  - T-CELL LYMPHOMA [None]
